FAERS Safety Report 23704643 (Version 2)
Quarter: 2024Q2

REPORT INFORMATION
  Report Type: Spontaneous
  Country: CN (occurrence: CN)
  Receive Date: 20240404
  Receipt Date: 20240425
  Transmission Date: 20240715
  Serious: Yes (Life-Threatening, Hospitalization)
  Sender: FDA-Public Use
  Company Number: CN-Jiangsu Hengrui Medicine Co., Ltd.-2155210

PATIENT
  Age: 68 Year
  Sex: Female

DRUGS (6)
  1. CISATRACURIUM BESYLATE [Suspect]
     Active Substance: CISATRACURIUM BESYLATE
     Indication: Product used for unknown indication
     Dates: start: 20240319
  2. REMIMAZOLAM [Concomitant]
     Active Substance: REMIMAZOLAM
     Dates: start: 20240319
  3. REMIFENTANIL [Concomitant]
     Active Substance: REMIFENTANIL
     Dates: start: 20240319
  4. PROPOFOL [Concomitant]
     Active Substance: PROPOFOL
     Dates: start: 20240319
  5. ETOMIDATE [Concomitant]
     Active Substance: ETOMIDATE
     Dates: start: 20240319
  6. SUFENTANIL [Concomitant]
     Active Substance: SUFENTANIL
     Dates: start: 20240319

REACTIONS (4)
  - Apnoea [Recovered/Resolved]
  - Heart rate decreased [Recovered/Resolved]
  - Blood pressure decreased [Recovered/Resolved]
  - Loss of consciousness [Recovered/Resolved]

NARRATIVE: CASE EVENT DATE: 20240319
